FAERS Safety Report 19948826 (Version 1)
Quarter: 2021Q4

REPORT INFORMATION
  Report Type: Spontaneous
  Country: GB (occurrence: GB)
  Receive Date: 20211013
  Receipt Date: 20211013
  Transmission Date: 20220303
  Serious: Yes (Disabling)
  Sender: FDA-Public Use
  Company Number: GB-NOVARTISPH-NVSC2021GB232913

PATIENT
  Age: 29 Year
  Sex: Female

DRUGS (1)
  1. ONDANSETRON [Suspect]
     Active Substance: ONDANSETRON
     Indication: Hyperemesis gravidarum
     Dosage: 4 MG
     Route: 048
     Dates: start: 20200906, end: 20200927

REACTIONS (2)
  - Maternal exposure during pregnancy [Unknown]
  - Medication error [Unknown]
